FAERS Safety Report 4983914-3 (Version None)
Quarter: 2006Q2

REPORT INFORMATION
  Report Type: 
  Country: None (occurrence: None)
  Receive Date: 20060426
  Receipt Date: 20060301
  Transmission Date: 20061013
  Serious: Yes (Hospitalization, Disabling)
  Sender: FDA-Public Use
  Company Number: US-MERCK-0603USA00446

PATIENT
  Age: 49 Year
  Sex: Male
  Weight: 91 kg

DRUGS (5)
  1. VIOXX [Suspect]
     Indication: BACK PAIN
     Route: 048
     Dates: start: 20010228, end: 20020730
  2. VIOXX [Suspect]
     Indication: PAIN IN EXTREMITY
     Route: 048
     Dates: start: 20010228, end: 20020730
  3. PRILOSEC [Concomitant]
     Route: 065
  4. AZMACORT [Concomitant]
     Route: 065
  5. VENTOLIN [Concomitant]
     Route: 065

REACTIONS (17)
  - ABDOMINAL PAIN [None]
  - ACUTE CORONARY SYNDROME [None]
  - ACUTE PRERENAL FAILURE [None]
  - ANGINA UNSTABLE [None]
  - ASTHENIA [None]
  - ATRIAL FIBRILLATION [None]
  - CARDIAC FAILURE CONGESTIVE [None]
  - CORONARY ARTERY OCCLUSION [None]
  - CORONARY ARTERY STENOSIS [None]
  - DEHYDRATION [None]
  - DIZZINESS [None]
  - GUN SHOT WOUND [None]
  - HEAT EXHAUSTION [None]
  - JOINT SPRAIN [None]
  - MUSCLE SPASMS [None]
  - MYOCARDIAL INFARCTION [None]
  - URINARY TRACT INFECTION [None]
